FAERS Safety Report 7083626-9 (Version None)
Quarter: 2010Q4

REPORT INFORMATION
  Report Type: 
  Country: None (occurrence: None)
  Receive Date: 20101104
  Receipt Date: 20101029
  Transmission Date: 20110411
  Serious: Yes (Other)
  Sender: FDA-Public Use
  Company Number: CHPA2010LV17023

PATIENT
  Sex: Female

DRUGS (1)
  1. THERAFLU UNKNOWN (NCH) [Suspect]
     Dosage: 2 DF, QD
     Route: 048

REACTIONS (2)
  - MALAISE [None]
  - SYNCOPE [None]
